FAERS Safety Report 17798452 (Version 1)
Quarter: 2020Q2

REPORT INFORMATION
  Report Type: Report from Study
  Country: ES (occurrence: ES)
  Receive Date: 20200518
  Receipt Date: 20200518
  Transmission Date: 20200714
  Serious: Yes (Hospitalization)
  Sender: FDA-Public Use
  Company Number: ES-TEVA-2020-ES-1235786

PATIENT
  Age: 80 Year
  Sex: Female

DRUGS (6)
  1. ATORVASTATINA (7400A) [Suspect]
     Active Substance: ATORVASTATIN
     Indication: DYSLIPIDAEMIA
     Dosage: 400 MG
     Route: 048
     Dates: start: 20180405, end: 20191018
  2. OMEPRAZOL (2141A) [Concomitant]
     Active Substance: OMEPRAZOLE
     Indication: GASTRITIS PROPHYLAXIS
     Dosage: 20 MG
     Route: 048
     Dates: start: 2019, end: 20191018
  3. RIVAROXABAN (8281A) [Concomitant]
     Active Substance: RIVAROXABAN
     Indication: ATRIAL FIBRILLATION
     Dosage: 20 MG
     Route: 048
     Dates: start: 20170427, end: 20191010
  4. FENTANILO (1543A) [Concomitant]
     Active Substance: FENTANYL
     Indication: PAIN
     Dosage: 8.3 MICROGRAM
     Route: 062
     Dates: start: 20161219
  5. TORASEMIDA (2351A) [Concomitant]
     Active Substance: TORSEMIDE
     Indication: HYPERTENSION
     Dosage: 10 MG
     Route: 048
     Dates: start: 20170412, end: 20191018
  6. PARACETAMOL (12A) [Concomitant]
     Active Substance: ACETAMINOPHEN
     Indication: PAIN
     Dosage: 650 MG
     Route: 048
     Dates: start: 20141117, end: 20191018

REACTIONS (2)
  - Cholestasis [Recovered/Resolved]
  - Pancreatitis acute [Recovered/Resolved]

NARRATIVE: CASE EVENT DATE: 20191017
